FAERS Safety Report 12690397 (Version 1)
Quarter: 2016Q3

REPORT INFORMATION
  Report Type: Spontaneous
  Country: US (occurrence: US)
  Receive Date: 20160826
  Receipt Date: 20160826
  Transmission Date: 20161109
  Serious: No
  Sender: FDA-Public Use
  Company Number: US-FRI-1000084343

PATIENT
  Sex: Female

DRUGS (4)
  1. LEXAPRO [Suspect]
     Active Substance: ESCITALOPRAM OXALATE
     Indication: ANXIETY
     Route: 048
     Dates: start: 201603
  2. TOPAMAX [Concomitant]
     Active Substance: TOPIRAMATE
     Indication: CSF TEST ABNORMAL
     Dosage: 300MG
     Route: 048
  3. KLONOPIN [Concomitant]
     Active Substance: CLONAZEPAM
     Indication: SLEEP DISORDER THERAPY
     Dosage: 0.01MG
     Route: 048
  4. VITAMINS [Concomitant]
     Active Substance: VITAMINS
     Indication: SUPPLEMENTATION THERAPY
     Route: 048

REACTIONS (4)
  - Flushing [Recovering/Resolving]
  - Erythema [Recovering/Resolving]
  - Cyanosis [Recovering/Resolving]
  - Intentional product misuse [Unknown]
